FAERS Safety Report 5853036-8 (Version None)
Quarter: 2008Q3

REPORT INFORMATION
  Report Type: 
  Country: None (occurrence: None)
  Receive Date: 20080814
  Receipt Date: 20080507
  Transmission Date: 20090109
  Serious: No
  Sender: FDA-Public Use
  Company Number: WAES 0805USA01304

PATIENT
  Age: 46 Year
  Sex: Male

DRUGS (6)
  1. ISENTRESS [Suspect]
     Indication: HIV INFECTION
     Dosage: 400 MG/BID/PO
     Route: 048
     Dates: start: 20080402
  2. EPIVIR [Concomitant]
  3. NORVIR [Concomitant]
  4. PREZISTA [Concomitant]
  5. VIREAD [Concomitant]
  6. [THERAPY UNSPECIFIED] [Concomitant]

REACTIONS (1)
  - WEIGHT INCREASED [None]
